FAERS Safety Report 5888418-1 (Version None)
Quarter: 2008Q3

REPORT INFORMATION
  Report Type: 
  Country: None (occurrence: None)
  Receive Date: 20080918
  Receipt Date: 20080905
  Transmission Date: 20090109
  Serious: Yes (Disabling)
  Sender: FDA-Public Use
  Company Number: DE-ELI_LILLY_AND_COMPANY-DE200807001006

PATIENT
  Age: 9 Year
  Sex: Female
  Weight: 36 kg

DRUGS (1)
  1. STRATTERA [Suspect]
     Indication: ATTENTION DEFICIT/HYPERACTIVITY DISORDER
     Dosage: 18 MG, DAILY (1/D)
     Route: 048
     Dates: start: 20080410

REACTIONS (6)
  - ARTHRALGIA [None]
  - ARTHRITIS REACTIVE [None]
  - GAIT DISTURBANCE [None]
  - JOINT EFFUSION [None]
  - JOINT SWELLING [None]
  - JOINT WARMTH [None]
